FAERS Safety Report 6696519-3 (Version None)
Quarter: 2010Q2

REPORT INFORMATION
  Report Type: 
  Country: None (occurrence: None)
  Receive Date: 20100421
  Receipt Date: 20100218
  Transmission Date: 20101027
  Serious: No
  Sender: FDA-Public Use
  Company Number: PR-000028

PATIENT
  Sex: Female
  Weight: 3 kg

DRUGS (1)
  1. KUVAN [Suspect]
     Indication: PHENYLKETONURIA
     Dosage: (TRANSPLACENTAL)
     Route: 064
     Dates: start: 20090601, end: 20100202

REACTIONS (1)
  - DRUG EXPOSURE DURING PREGNANCY [None]
